FAERS Safety Report 7029535-2 (Version None)
Quarter: 2010Q3

REPORT INFORMATION
  Report Type: 
  Country: None (occurrence: None)
  Receive Date: 20100930
  Receipt Date: 20100924
  Transmission Date: 20110219
  Serious: Yes (Hospitalization)
  Sender: FDA-Public Use
  Company Number: 2010AC000348

PATIENT
  Age: 68 Year
  Sex: Female

DRUGS (30)
  1. DIGOXIN [Suspect]
     Dosage: PO
     Route: 048
     Dates: start: 20060601, end: 20070901
  2. DIGOXIN [Suspect]
     Indication: ATRIAL FIBRILLATION
     Dosage: 0.25 MG;QD;PO
     Route: 048
     Dates: start: 20060601
  3. DIGOXIN [Suspect]
     Indication: CARDIAC FAILURE CONGESTIVE
     Dosage: 0.25 MG;QD;PO
     Route: 048
     Dates: start: 20060601
  4. *AZITHROMYCIN [Concomitant]
  5. PLAVIX [Concomitant]
  6. ASPIRIN [Concomitant]
  7. DIOVAN [Concomitant]
  8. COREG [Concomitant]
  9. THYROID [Concomitant]
  10. ISORBIDE [Concomitant]
  11. BUMEX [Concomitant]
  12. ZANTAC [Concomitant]
  13. NEURONTIN [Concomitant]
  14. BYETTA [Concomitant]
  15. GLIPIZIDE [Concomitant]
  16. GLUCOPHAGE [Concomitant]
  17. ACTOS [Concomitant]
  18. XANAX [Concomitant]
  19. POTASSIUM [Concomitant]
  20. ALBUTEROL [Concomitant]
  21. ATROVENT [Concomitant]
  22. LOVENOX [Concomitant]
  23. CARAFATE [Concomitant]
  24. ALLEGRA [Concomitant]
  25. ADVAIR DISKUS 100/50 [Concomitant]
  26. LEVAQUIN [Concomitant]
  27. DIGIBIND [Concomitant]
  28. DILTIAZEM [Concomitant]
  29. BUMEX [Concomitant]
  30. VITAMIN TAB [Concomitant]

REACTIONS (18)
  - ABDOMINAL PAIN LOWER [None]
  - ATRIAL FIBRILLATION [None]
  - BACK PAIN [None]
  - BLOOD UREA INCREASED [None]
  - BRAIN NATRIURETIC PEPTIDE INCREASED [None]
  - CARDIOACTIVE DRUG LEVEL INCREASED [None]
  - CORONARY ARTERY STENOSIS [None]
  - DEHYDRATION [None]
  - DIARRHOEA [None]
  - DYSPNOEA [None]
  - ECONOMIC PROBLEM [None]
  - INJURY [None]
  - NAUSEA [None]
  - PAIN [None]
  - THERAPEUTIC AGENT TOXICITY [None]
  - TRICUSPID VALVE INCOMPETENCE [None]
  - VENTRICULAR EXTRASYSTOLES [None]
  - VOMITING [None]
